FAERS Safety Report 22176102 (Version 1)
Quarter: 2023Q2

REPORT INFORMATION
  Report Type: Spontaneous
  Country: US (occurrence: None)
  Receive Date: 20230404
  Receipt Date: 20230404
  Transmission Date: 20230721
  Serious: Yes (Hospitalization)
  Sender: FDA-Public Use
  Company Number: None

PATIENT
  Age: 11 Year
  Sex: Male
  Weight: 71.8 kg

DRUGS (4)
  1. TRETINOIN [Suspect]
     Active Substance: TRETINOIN
     Indication: Acute promyelocytic leukaemia
     Dosage: 20MG TWICE DAILY ORAL
     Route: 048
  2. ARSENIC TRIOXIDE [Concomitant]
     Active Substance: ARSENIC TRIOXIDE
  3. INSULIN NOS [Concomitant]
     Active Substance: INSULIN NOS
  4. ZOFRAN [Concomitant]
     Active Substance: ONDANSETRON HYDROCHLORIDE

REACTIONS (3)
  - Infection [None]
  - Pyrexia [None]
  - Product dose omission issue [None]

NARRATIVE: CASE EVENT DATE: 20230401
